FAERS Safety Report 10135233 (Version 2)
Quarter: 2015Q1

REPORT INFORMATION
  Report Type: Other
  Country: US (occurrence: US)
  Receive Date: 20140428
  Receipt Date: 20150211
  Transmission Date: 20150720
  Serious: Yes (Death)
  Sender: FDA-Public Use
  Company Number: US-GSKPPD-2014GSK036283

PATIENT
  Age: 71 Year
  Sex: Male

DRUGS (3)
  1. COREG [Concomitant]
     Active Substance: CARVEDILOL
     Route: 048
  2. LASIX [Concomitant]
     Active Substance: FUROSEMIDE
     Route: 048
  3. AVANDIA [Suspect]
     Active Substance: ROSIGLITAZONE MALEATE
     Indication: DIABETES MELLITUS
     Dosage: DATES OF AVANDIA USE COULD NOT BE CONFIRMED IN RECORDS REVIEWED
     Route: 048

REACTIONS (2)
  - Cardiac arrest [Fatal]
  - Myocardial infarction [Unknown]

NARRATIVE: CASE EVENT DATE: 20061011
